FAERS Safety Report 21857454 (Version 1)
Quarter: 2023Q1

REPORT INFORMATION
  Report Type: Spontaneous
  Country: US (occurrence: US)
  Receive Date: 20230113
  Receipt Date: 20230113
  Transmission Date: 20230418
  Serious: No
  Sender: FDA-Public Use
  Company Number: US-BIOVITRUM-2023US00304

PATIENT
  Sex: Female
  Weight: 8 kg

DRUGS (11)
  1. SYNAGIS [Suspect]
     Active Substance: PALIVIZUMAB
     Indication: Trisomy 18
     Dosage: INTO THE MUSCLE
  2. SIMETHICONE (DIMETHICONE) [Concomitant]
     Active Substance: DIMETHICONE
     Dosage: 125 CAPSULE
  3. TYLENOL [Concomitant]
     Active Substance: ACETAMINOPHEN
     Dosage: 325 MG TABLET
  4. IBUPROFEN [Concomitant]
     Active Substance: IBUPROFEN
     Dosage: 100%POWDER
  5. FLOVENT DISKUS [Concomitant]
     Active Substance: FLUTICASONE PROPIONATE
     Dosage: 100 MCG BLST
  6. PEPCID COMPLETE [Concomitant]
     Active Substance: CALCIUM CARBONATE\FAMOTIDINE\MAGNESIUM HYDROXIDE
     Dosage: 10-800-165 TAB CHEW
  7. CLARITIN [Concomitant]
     Active Substance: LORATADINE
     Dosage: 5 MG TAB RAPIDS
  8. ALBUTEROL SULFATE [Concomitant]
     Active Substance: ALBUTEROL SULFATE
  9. SYNAGIS [Suspect]
     Active Substance: PALIVIZUMAB
     Indication: Respiratory failure
  10. EPINEPHRINE [Concomitant]
     Active Substance: EPINEPHRINE
  11. SYNAGIS [Suspect]
     Active Substance: PALIVIZUMAB
     Indication: Hypoxia

REACTIONS (2)
  - Nasopharyngitis [Recovering/Resolving]
  - Pyrexia [Recovering/Resolving]
